FAERS Safety Report 17923873 (Version 1)
Quarter: 2020Q2

REPORT INFORMATION
  Report Type: Spontaneous
  Country: US (occurrence: US)
  Receive Date: 20200622
  Receipt Date: 20200622
  Transmission Date: 20200714
  Serious: No
  Sender: FDA-Public Use
  Company Number: None

PATIENT
  Age: 29 Year
  Sex: Female
  Weight: 58.5 kg

DRUGS (2)
  1. VYVANSE [Concomitant]
     Active Substance: LISDEXAMFETAMINE DIMESYLATE
  2. ETONOGESTREL/ETHINYL ESTRADIOL [Suspect]
     Active Substance: ETHINYL ESTRADIOL\ETONOGESTREL
     Indication: INSURANCE ISSUE
     Dosage: ?          OTHER FREQUENCY:INSERT FOR 3 WEEKS;?
     Route: 067
     Dates: start: 20200613, end: 20200622

REACTIONS (8)
  - Product substitution issue [None]
  - Migraine [None]
  - Product complaint [None]
  - Sensory disturbance [None]
  - Insomnia [None]
  - Breast pain [None]
  - Hyperaesthesia [None]
  - Back pain [None]

NARRATIVE: CASE EVENT DATE: 20200618
